FAERS Safety Report 11998377 (Version 1)
Quarter: 2016Q1

REPORT INFORMATION
  Report Type: Spontaneous
  Country: US (occurrence: None)
  Receive Date: 20160202
  Receipt Date: 20160202
  Transmission Date: 20160526
  Serious: Yes (Life-Threatening, Hospitalization, Disabling)
  Sender: FDA-Public Use
  Company Number: None

PATIENT
  Age: 67 Year
  Sex: Female
  Weight: 79 kg

DRUGS (27)
  1. COLESTIPOL [Concomitant]
     Active Substance: COLESTIPOL
  2. FUROSEMIDE. [Concomitant]
     Active Substance: FUROSEMIDE
  3. INSULIN DETEMIR [Concomitant]
     Active Substance: INSULIN DETEMIR
  4. NALOXONE [Concomitant]
     Active Substance: NALOXONE
  5. PROTHROMBIN COMPLEX (KCENTRA) [Concomitant]
  6. POLYETHYLENE GLYCOL 3350. [Concomitant]
     Active Substance: POLYETHYLENE GLYCOL 3350
  7. TRAMADOL. [Concomitant]
     Active Substance: TRAMADOL
  8. VENLAFAXINE [Concomitant]
     Active Substance: VENLAFAXINE HYDROCHLORIDE
  9. DOCUSATE [Concomitant]
     Active Substance: DOCUSATE
  10. LEVOFLOXACIN. [Concomitant]
     Active Substance: LEVOFLOXACIN
  11. PREGABALIN. [Concomitant]
     Active Substance: PREGABALIN
  12. SODIUM BISPHOSPHATE-SODIUM PHOSPHATE  (FLEET) [Concomitant]
  13. PANTOPRAZOLE [Concomitant]
     Active Substance: PANTOPRAZOLE SODIUM
  14. POTASSIUM CHLORIDE. [Concomitant]
     Active Substance: POTASSIUM CHLORIDE
  15. ONDANSETRON [Concomitant]
     Active Substance: ONDANSETRON
  16. PROMETHAZONE [Concomitant]
  17. ESTRADIOL. [Concomitant]
     Active Substance: ESTRADIOL
  18. INSULIN ASPART [Concomitant]
     Active Substance: INSULIN ASPART
  19. PANCREALIPASE [Concomitant]
     Active Substance: PANCRELIPASE
  20. ACETAMINOPHEN. [Concomitant]
     Active Substance: ACETAMINOPHEN
  21. LORAZEPAM. [Concomitant]
     Active Substance: LORAZEPAM
  22. AMLODIPINE [Concomitant]
     Active Substance: AMLODIPINE BESYLATE
  23. BARIUM SULFATE [Concomitant]
     Active Substance: BARIUM SULFATE
  24. ALBUTEROL-IPRATROPIUM [Concomitant]
  25. APIXABAN 5 MG BRI [Suspect]
     Active Substance: APIXABAN
     Indication: VENOUS THROMBOSIS LIMB
     Route: 048
     Dates: start: 20151123, end: 20151126
  26. NICOTINE TRANSDERMAL SYSTEM [Concomitant]
     Active Substance: NICOTINE
  27. MORPHINE [Concomitant]
     Active Substance: MORPHINE

REACTIONS (5)
  - Brain midline shift [None]
  - Staphylococcal bacteraemia [None]
  - Subarachnoid haemorrhage [None]
  - Brain oedema [None]
  - Staphylococcus test positive [None]

NARRATIVE: CASE EVENT DATE: 20151126
